FAERS Safety Report 8065865-3 (Version None)
Quarter: 2012Q1

REPORT INFORMATION
  Report Type: 
  Country: None (occurrence: None)
  Receive Date: 20120124
  Receipt Date: 20120118
  Transmission Date: 20120608
  Serious: Yes (Death, Other)
  Sender: FDA-Public Use
  Company Number: US-BAYER-200940578NA

PATIENT
  Age: 59 Year
  Sex: Female
  Weight: 96.599 kg

DRUGS (22)
  1. MILRINONE [Concomitant]
     Dosage: UNK
     Route: 042
     Dates: start: 20041029
  2. COUMADIN [Concomitant]
  3. AVALIDE [Concomitant]
     Dosage: 300/12.5 DAILY
     Route: 048
  4. TRASYLOL [Suspect]
     Dosage: 50 CC/HOUR INFUSION
     Route: 042
     Dates: start: 20041029, end: 20041029
  5. AMBIEN [Concomitant]
  6. VERSED [Concomitant]
     Dosage: 10 MG, UNK
     Route: 042
     Dates: start: 20041029
  7. SOLU-MEDROL [Concomitant]
     Dosage: UNK
     Route: 042
     Dates: start: 20041029
  8. TRASYLOL [Suspect]
     Indication: CARDIAC OPERATION
     Dosage: UNK
     Route: 042
     Dates: start: 20041029
  9. TRASYLOL [Suspect]
     Indication: AORTIC ANEURYSM REPAIR
     Dosage: 80
     Route: 042
     Dates: start: 20041029, end: 20041029
  10. LOPRESSOR [Concomitant]
     Dosage: 50 MG, UNK
  11. DIGOXIN [Concomitant]
  12. PROTAMINE SULFATE [Concomitant]
     Dosage: UNK
     Route: 042
     Dates: start: 20041029
  13. HEPARIN [Concomitant]
     Dosage: UNK
     Route: 042
     Dates: start: 20041029
  14. AVANDIA [Concomitant]
  15. EPINEPHRINE [Concomitant]
     Dosage: UNK
     Route: 042
     Dates: start: 20041029
  16. FENTANYL [Concomitant]
     Dosage: 15 MG, UNK
     Route: 042
     Dates: start: 20041029
  17. DOPAMINE HCL [Concomitant]
     Dosage: UNK
     Route: 042
     Dates: start: 20041029
  18. LIPITOR [Concomitant]
  19. CARDIZEM [Concomitant]
     Dosage: 120 MG, UNK
  20. ETOMIDATE [Concomitant]
     Dosage: 20
     Route: 042
     Dates: start: 20041029
  21. NIFEDIPINE [Concomitant]
  22. LOVENOX [Concomitant]
     Dosage: 40MG EVERY 12 HOURS
     Route: 058

REACTIONS (13)
  - MULTI-ORGAN FAILURE [None]
  - RENAL IMPAIRMENT [None]
  - PAIN [None]
  - INJURY [None]
  - DEATH [None]
  - EMOTIONAL DISTRESS [None]
  - RENAL INJURY [None]
  - FEAR [None]
  - STRESS [None]
  - ANXIETY [None]
  - RENAL FAILURE [None]
  - ANHEDONIA [None]
  - UNEVALUABLE EVENT [None]
